FAERS Safety Report 7099173-4 (Version None)
Quarter: 2010Q4

REPORT INFORMATION
  Report Type: 
  Country: None (occurrence: None)
  Receive Date: 20101112
  Receipt Date: 20101108
  Transmission Date: 20110411
  Serious: Yes (Death, Other)
  Sender: FDA-Public Use
  Company Number: PHHY2010US76165

PATIENT
  Sex: Male

DRUGS (1)
  1. NEORAL [Suspect]
     Dosage: 100 MG THRICE DAILY AND 25 MG TWICE DAILY
     Route: 048

REACTIONS (2)
  - COLITIS [None]
  - LIVER TRANSPLANT [None]
